FAERS Safety Report 5366969-6 (Version None)
Quarter: 2007Q2

REPORT INFORMATION
  Report Type: 
  Country: None (occurrence: None)
  Receive Date: 20070622
  Receipt Date: 20070608
  Transmission Date: 20071010
  Serious: Yes (Other)
  Sender: FDA-Public Use
  Company Number: US-PFIZER INC-2007048313

PATIENT
  Sex: Female
  Weight: 93.636 kg

DRUGS (3)
  1. CHANTIX [Suspect]
     Indication: SMOKING CESSATION THERAPY
     Route: 048
  2. ATENOLOL [Concomitant]
     Indication: HYPERTENSION
  3. PLAVIX [Concomitant]

REACTIONS (1)
  - WEIGHT DECREASED [None]
